FAERS Safety Report 4818112-7 (Version None)
Quarter: 2005Q4

REPORT INFORMATION
  Report Type: 
  Country: None (occurrence: None)
  Receive Date: 20051101
  Receipt Date: 20051101
  Transmission Date: 20060501
  Serious: Yes (Hospitalization)
  Sender: FDA-Public Use
  Company Number: None

PATIENT
  Age: 78 Year
  Sex: Male
  Weight: 75.7507 kg

DRUGS (14)
  1. DIGOXIN [Suspect]
     Indication: ATRIAL FIBRILLATION
     Dosage: 0.25 MG DAILY
     Dates: start: 20050201, end: 20050920
  2. CLONIDINE [Suspect]
     Indication: HYPERTENSION
     Dosage: 0.2 MG BID
     Dates: start: 20050201, end: 20050920
  3. WARFARIN [Concomitant]
  4. ALPRAZOLAM [Concomitant]
  5. DIGOXIN [Concomitant]
  6. CLONIDINE HCL [Concomitant]
  7. FUROSEMIDE [Concomitant]
  8. ALBUTEROL [Concomitant]
  9. POTASSIUM CHLORIDE [Concomitant]
  10. ACETAMINOPHEN [Concomitant]
  11. CEPHALEXIN [Concomitant]
  12. LORAZEPAM [Concomitant]
  13. RANITIDINE HCL [Concomitant]
  14. WARFARIN [Concomitant]

REACTIONS (2)
  - BRADYCARDIA [None]
  - SYNCOPE [None]
